FAERS Safety Report 8492162-4 (Version None)
Quarter: 2012Q3

REPORT INFORMATION
  Report Type: 
  Country: None (occurrence: None)
  Receive Date: 20120706
  Receipt Date: 20120702
  Transmission Date: 20120928
  Serious: No
  Sender: FDA-Public Use
  Company Number: US-PFIZER INC-2012159475

PATIENT
  Sex: Male

DRUGS (1)
  1. INLYTA [Suspect]
     Indication: RENAL CANCER
     Dosage: 5 MG, 2X/DAY, 12 HRS APART
     Route: 048
     Dates: start: 20120622

REACTIONS (6)
  - DECREASED APPETITE [None]
  - FATIGUE [None]
  - DYSPHONIA [None]
  - WEIGHT DECREASED [None]
  - THROAT IRRITATION [None]
  - CONSTIPATION [None]
